FAERS Safety Report 9831239 (Version 1)
Quarter: 2014Q1

REPORT INFORMATION
  Report Type: Spontaneous
  Country: US (occurrence: US)
  Receive Date: 20140121
  Receipt Date: 20140121
  Transmission Date: 20141002
  Serious: Yes (Other)
  Sender: FDA-Public Use
  Company Number: US-AMGEN-USASP2014003363

PATIENT
  Age: 61 Year
  Sex: Female

DRUGS (4)
  1. ENBREL [Suspect]
     Indication: RHEUMATOID ARTHRITIS
     Dosage: 50 MG, UNK
     Route: 065
     Dates: start: 2006
  2. PIROXICAM [Concomitant]
     Dosage: 20 MG DAILY
  3. NEXIUM                             /01479302/ [Concomitant]
     Dosage: 40 MG DAILY
  4. RANITIDINE [Concomitant]
     Dosage: 150 MG DAILY

REACTIONS (4)
  - Leukoplakia [Unknown]
  - Back pain [Unknown]
  - Dry mouth [Unknown]
  - Laboratory test abnormal [Unknown]
